FAERS Safety Report 8345128 (Version 3)
Quarter: 2012Q4

REPORT INFORMATION
  Report Type: 
  Country: US (occurrence: US)
  Receive Date: 20120120
  Receipt Date: 20121219
  Transmission Date: 20130627
  Serious: Yes (Other)
  Sender: FDA-Public Use
  Company Number: US-PFIZER INC-2012012744

PATIENT
  Age: 81 Year
  Sex: Female

DRUGS (2)
  1. XALATAN [Suspect]
     Indication: GLAUCOMA
     Dosage: 1 Gtt, 1x/day
     Route: 047
     Dates: start: 2010
  2. LATANOPROST [Suspect]
     Dosage: UNK

REACTIONS (2)
  - Glaucoma [Unknown]
  - Eye disorder [Unknown]
